FAERS Safety Report 9072564 (Version 1)
Quarter: 2013Q1

REPORT INFORMATION
  Report Type: Spontaneous
  Country: US (occurrence: US)
  Receive Date: 20130129
  Receipt Date: 20130129
  Transmission Date: 20140127
  Serious: Yes (Other)
  Sender: FDA-Public Use
  Company Number: US-ABBOTT-12P-163-0923977-00

PATIENT
  Age: 19 None
  Sex: Female
  Weight: 62.65 kg

DRUGS (4)
  1. HUMIRA 40 MG/0.8 ML PEN [Suspect]
     Indication: CROHN^S DISEASE
     Route: 058
     Dates: start: 201108, end: 201112
  2. HUMIRA 40 MG/0.8 ML PEN [Suspect]
     Route: 058
     Dates: start: 201112
  3. FLAGYL [Concomitant]
     Indication: ANTIBIOTIC PROPHYLAXIS
  4. IMURAN [Concomitant]
     Indication: CROHN^S DISEASE

REACTIONS (4)
  - Peritonitis [Recovered/Resolved]
  - Epistaxis [Recovered/Resolved]
  - Polymenorrhoea [Not Recovered/Not Resolved]
  - Nasopharyngitis [Recovered/Resolved]
